FAERS Safety Report 17524650 (Version 2)
Quarter: 2020Q2

REPORT INFORMATION
  Report Type: Spontaneous
  Country: PL (occurrence: PL)
  Receive Date: 20200310
  Receipt Date: 20200430
  Transmission Date: 20200713
  Serious: Yes (Other)
  Sender: FDA-Public Use
  Company Number: PL-UCBSA-2020006967

PATIENT
  Age: 25 Year
  Sex: Female

DRUGS (16)
  1. VIMPAT [Suspect]
     Active Substance: LACOSAMIDE
     Indication: OFF LABEL USE
  2. VALPROIC ACID. [Suspect]
     Active Substance: VALPROIC ACID
     Indication: SEIZURE
     Dosage: UNKNOWN DOSE
  3. VALPROIC ACID. [Suspect]
     Active Substance: VALPROIC ACID
     Indication: EPILEPSY
  4. ETHINYLOESTRADIOL [Suspect]
     Active Substance: ETHINYL ESTRADIOL
     Indication: AMENORRHOEA
     Dosage: UNK
     Route: 062
  5. VIMPAT [Suspect]
     Active Substance: LACOSAMIDE
     Indication: EPILEPSY
     Dosage: DOSES GRADUALLY INCREASING TO 400 MG PER DAY
  6. TOPIRAMATE. [Suspect]
     Active Substance: TOPIRAMATE
     Indication: SEIZURE
     Dosage: UNKNOWN DOSE
     Route: 048
  7. OXCARBAZEPINE. [Suspect]
     Active Substance: OXCARBAZEPINE
     Indication: PRODUCT USED FOR UNKNOWN INDICATION
     Dosage: UNKNOWN DOSE
  8. LAMOTRIGINE. [Concomitant]
     Active Substance: LAMOTRIGINE
     Indication: SEIZURE
     Dosage: 300 MILLIGRAM DAILY
  9. TIAGABINE HYDROCHLORIDE. [Suspect]
     Active Substance: TIAGABINE HYDROCHLORIDE
     Indication: EPILEPSY
     Dosage: DOSES INCREASING TO 20 MG DAILY
  10. ETHINYLOESTRADIOL [Suspect]
     Active Substance: ETHINYL ESTRADIOL
     Indication: HORMONE REPLACEMENT THERAPY
  11. METFORMIN [Concomitant]
     Active Substance: METFORMIN HYDROCHLORIDE
     Indication: INSULIN RESISTANCE
     Dosage: UNKNOWN DOSE
  12. NORELGESTROMIN [Concomitant]
     Active Substance: NORELGESTROMIN
     Indication: AMENORRHOEA
  13. NORELGESTROMIN [Concomitant]
     Active Substance: NORELGESTROMIN
     Indication: HORMONE REPLACEMENT THERAPY
  14. LAMOTRIGINE. [Concomitant]
     Active Substance: LAMOTRIGINE
     Dosage: GRADUALLY INCREASING DOSES UP TO 250 MG PER DAY
  15. KEPPRA [Suspect]
     Active Substance: LEVETIRACETAM
     Indication: PARTIAL SEIZURES
     Dosage: 3 GRAM DAILY
  16. KEPPRA [Suspect]
     Active Substance: LEVETIRACETAM
     Indication: OFF LABEL USE

REACTIONS (7)
  - Educational problem [Recovered/Resolved]
  - Seizure [Recovering/Resolving]
  - Disturbance in attention [Recovered/Resolved]
  - Dizziness [Unknown]
  - Learning disorder [Unknown]
  - Off label use [Unknown]
  - Multiple-drug resistance [Recovered/Resolved]
